FAERS Safety Report 5196712-5 (Version None)
Quarter: 2006Q4

REPORT INFORMATION
  Report Type: 
  Country: None (occurrence: None)
  Receive Date: 20061228
  Receipt Date: 20061228
  Transmission Date: 20070319
  Serious: No
  Sender: FDA-Public Use
  Company Number: None

PATIENT
  Sex: Male
  Weight: 60 kg

DRUGS (2)
  1. CETUXIMAB [Suspect]
     Indication: NEOPLASM MALIGNANT
     Dosage: 430 MG IV WEEKLY
     Route: 042
     Dates: start: 20061115
  2. CISPLATIN [Suspect]
     Indication: NEOPLASM MALIGNANT
     Dosage: 520 MG IV WEEKLY
     Route: 042
     Dates: start: 20061115

REACTIONS (1)
  - FEBRILE NEUTROPENIA [None]
